FAERS Safety Report 9612472 (Version 2)
Quarter: 2013Q4

REPORT INFORMATION
  Report Type: Spontaneous
  Country: US (occurrence: US)
  Receive Date: 20131010
  Receipt Date: 20131010
  Transmission Date: 20140711
  Serious: Yes (Other)
  Sender: FDA-Public Use
  Company Number: US-NOVOPROD-387685

PATIENT
  Age: 74 Year
  Sex: Female

DRUGS (1)
  1. VICTOZA [Suspect]
     Indication: DIABETES MELLITUS
     Dosage: 1.2 MG, QD
     Route: 058

REACTIONS (7)
  - Dehydration [Unknown]
  - Blood glucose increased [Recovered/Resolved]
  - Urinary tract infection [Unknown]
  - Panic attack [Unknown]
  - Chest pain [Unknown]
  - Rectal haemorrhage [Unknown]
  - Constipation [Unknown]
